FAERS Safety Report 7450003-8 (Version None)
Quarter: 2011Q2

REPORT INFORMATION
  Report Type: 
  Country: None (occurrence: None)
  Receive Date: 20110502
  Receipt Date: 20110420
  Transmission Date: 20111010
  Serious: Yes (Hospitalization, Other)
  Sender: FDA-Public Use
  Company Number: DK-ELI_LILLY_AND_COMPANY-DK201007005191

PATIENT
  Sex: Female
  Weight: 50 kg

DRUGS (9)
  1. HJERDYL [Concomitant]
  2. TODOLAC [Concomitant]
  3. TERIPARATIDE [Suspect]
     Indication: OSTEOPOROSIS
     Dosage: 20 UG, DAILY (1/D)
     Route: 058
     Dates: start: 20090814, end: 20100705
  4. PERSANTIN [Concomitant]
  5. OMEPRAZOL [Concomitant]
  6. VAGIFEM [Concomitant]
  7. XALCOM [Concomitant]
  8. LISINOPRIL [Concomitant]
     Indication: HYPERTENSION
     Dosage: 5 MG, UNKNOWN
     Route: 048
     Dates: start: 20091201
  9. PAMOL [Concomitant]

REACTIONS (4)
  - HYPERCALCAEMIA [None]
  - DEHYDRATION [None]
  - CONFUSIONAL STATE [None]
  - APATHY [None]
